FAERS Safety Report 9246941 (Version 1)
Quarter: 2013Q2

REPORT INFORMATION
  Report Type: Report from Study
  Country: US (occurrence: US)
  Receive Date: 20130422
  Receipt Date: 20130422
  Transmission Date: 20140414
  Serious: No
  Sender: FDA-Public Use
  Company Number: US-ABBOTT-12P-163-0930106-00

PATIENT
  Age: 8 Year
  Sex: Female
  Weight: 24.52 kg

DRUGS (8)
  1. LUPRON DEPOT-PED 11.25 MG [Suspect]
     Indication: PRECOCIOUS PUBERTY
     Route: 050
     Dates: start: 20120309
  2. SYNTHROID [Concomitant]
     Indication: THYROID DISORDER
  3. MIRALAX [Concomitant]
     Indication: PRODUCT USED FOR UNKNOWN INDICATION
  4. BIAXIN [Concomitant]
     Indication: IMMUNE SYSTEM DISORDER
  5. ADVAIR [Concomitant]
     Indication: ASTHMA
  6. ZANTAC [Concomitant]
     Indication: PRODUCT USED FOR UNKNOWN INDICATION
  7. EVEG [Concomitant]
     Indication: PRODUCT USED FOR UNKNOWN INDICATION
     Route: 050
  8. ALBUTEROL [Concomitant]
     Indication: ASTHMA

REACTIONS (6)
  - Irritability [Recovered/Resolved]
  - Injection site pain [Recovered/Resolved]
  - Injection site erythema [Recovered/Resolved]
  - Injection site warmth [Recovered/Resolved]
  - Injection site inflammation [Recovered/Resolved]
  - Feeling of despair [Recovered/Resolved]
